FAERS Safety Report 25573158 (Version 2)
Quarter: 2025Q3

REPORT INFORMATION
  Report Type: Spontaneous
  Country: US (occurrence: US)
  Receive Date: 20250717
  Receipt Date: 20250908
  Transmission Date: 20251021
  Serious: No
  Sender: PFIZER
  Company Number: US-PFIZER INC-202500144154

PATIENT
  Age: 72 Year
  Sex: Female
  Weight: 68.04 kg

DRUGS (2)
  1. GLIPIZIDE [Interacting]
     Active Substance: GLIPIZIDE
     Dates: start: 202501, end: 202505
  2. HYDROCHLOROTHIAZIDE\LOSARTAN POTASSIUM [Interacting]
     Active Substance: HYDROCHLOROTHIAZIDE\LOSARTAN POTASSIUM
     Indication: Blood pressure abnormal
     Dosage: ONE TABLET A DAY, 100MG/25MG
     Route: 048

REACTIONS (2)
  - Blood glucose fluctuation [Unknown]
  - Drug interaction [Unknown]
